FAERS Safety Report 19929143 (Version 1)
Quarter: 2021Q4

REPORT INFORMATION
  Report Type: Spontaneous
  Country: DE (occurrence: DE)
  Receive Date: 20211007
  Receipt Date: 20211007
  Transmission Date: 20220303
  Serious: Yes (Congenital Anomaly, Other)
  Sender: FDA-Public Use
  Company Number: None

PATIENT
  Age: 1 Day
  Sex: Female
  Weight: 2 kg

DRUGS (3)
  1. METHYLDOPA [Concomitant]
     Active Substance: METHYLDOPA
     Indication: Gestational hypertension
     Dosage: 1000 MG/D (500-250-250 MG DAILY)
     Route: 064
  2. FOLIC ACID [Concomitant]
     Active Substance: FOLIC ACID
     Indication: Prophylaxis of neural tube defect
     Dosage: UNKNOWN
     Route: 064
     Dates: start: 20200508, end: 20210129
  3. LAMOTRIGINE [Suspect]
     Active Substance: LAMOTRIGINE
     Indication: Epilepsy
     Dosage: 525 MG/D (INITIAL 500MG, INCREASED TO 525MG DAILY)
     Route: 064
     Dates: start: 20200508, end: 20210129

REACTIONS (3)
  - Retrognathia [Unknown]
  - Foetal exposure during pregnancy [Unknown]
  - Cleft palate [Not Recovered/Not Resolved]

NARRATIVE: CASE EVENT DATE: 20210129
